FAERS Safety Report 5913562-X (Version None)
Quarter: 2008Q4

REPORT INFORMATION
  Report Type: 
  Country: None (occurrence: None)
  Receive Date: 20081007
  Receipt Date: 20080924
  Transmission Date: 20090506
  Serious: Yes (Hospitalization)
  Sender: FDA-Public Use
  Company Number: AZAJP200800325

PATIENT
  Age: 66 Year
  Sex: Male

DRUGS (1)
  1. VIDAZA [Suspect]
     Indication: MYELODYSPLASTIC SYNDROME
     Dosage: 75MG/M2, 7 X DAILY) SUBCUTANEOUS
     Route: 058
     Dates: start: 20080805, end: 20080811

REACTIONS (2)
  - PNEUMONIA FUNGAL [None]
  - SEPSIS [None]
